FAERS Safety Report 25785161 (Version 3)
Quarter: 2025Q4

REPORT INFORMATION
  Report Type: Spontaneous
  Country: CA (occurrence: CA)
  Receive Date: 20250910
  Receipt Date: 20251009
  Transmission Date: 20260117
  Serious: Yes (Other)
  Sender: CELLTRION
  Company Number: CA-CELLTRION INC.-2025CA031911

PATIENT

DRUGS (3)
  1. STEQEYMA [Suspect]
     Active Substance: USTEKINUMAB-STBA
     Indication: Crohn^s disease
     Dosage: LOADING - 390 MG - OTHER
     Route: 058
     Dates: start: 20250409
  2. STEQEYMA [Suspect]
     Active Substance: USTEKINUMAB-STBA
     Dosage: MAINTENANCE - 90 MG - EVERY  8 WEEKS
     Route: 058
     Dates: start: 20250409
  3. STEQEYMA [Suspect]
     Active Substance: USTEKINUMAB-STBA
     Dosage: MAINTENANCE - 90 MG - EVERY  4 WEEKS
     Route: 058

REACTIONS (7)
  - Haematochezia [Unknown]
  - Abdominal pain [Recovering/Resolving]
  - Harvey-Bradshaw index decreased [Recovering/Resolving]
  - Faeces soft [Recovering/Resolving]
  - Symptom recurrence [Unknown]
  - Therapeutic response shortened [Unknown]
  - Intentional product use issue [Unknown]
